FAERS Safety Report 14639925 (Version 1)
Quarter: 2018Q1

REPORT INFORMATION
  Report Type: Report from Study
  Country: US (occurrence: US)
  Receive Date: 20180315
  Receipt Date: 20180315
  Transmission Date: 20180509
  Serious: Yes (Hospitalization, Other)
  Sender: FDA-Public Use
  Company Number: US-TESARO, INC.-US-2018TSO01156

PATIENT

DRUGS (2)
  1. ZEJULA [Suspect]
     Active Substance: NIRAPARIB
     Indication: OVARIAN CANCER
     Dosage: 300 MG, UNK
     Route: 048
     Dates: start: 20171127
  2. ZEJULA [Suspect]
     Active Substance: NIRAPARIB
     Dosage: 200 MG, UNK
     Route: 048
     Dates: start: 20171204

REACTIONS (5)
  - Adnexa uteri mass [Not Recovered/Not Resolved]
  - Syncope [Not Recovered/Not Resolved]
  - Hospitalisation [Not Recovered/Not Resolved]
  - Diarrhoea [Not Recovered/Not Resolved]
  - Thrombocytopenia [Not Recovered/Not Resolved]
